FAERS Safety Report 10079904 (Version 1)
Quarter: 2014Q2

REPORT INFORMATION
  Report Type: Spontaneous
  Country: US (occurrence: US)
  Receive Date: 20140415
  Receipt Date: 20140415
  Transmission Date: 20141212
  Serious: No
  Sender: FDA-Public Use
  Company Number: US-ASTRAZENECA-2014SE05668

PATIENT
  Age: 60 Year
  Sex: Female
  Weight: 68 kg

DRUGS (4)
  1. SYMBICORT [Suspect]
     Indication: CHRONIC OBSTRUCTIVE PULMONARY DISEASE
     Dosage: 160/4.5, 2 PUFFS BID
     Route: 055
  2. OMEPRAZOLE [Suspect]
     Indication: GASTRIC DISORDER
     Route: 048
  3. SERTRALINE [Concomitant]
     Indication: DEPRESSION
  4. AMITRIPTYLINE [Concomitant]
     Indication: SLEEP DISORDER

REACTIONS (8)
  - Dyspnoea [Unknown]
  - Hypoxia [Unknown]
  - Weight increased [Unknown]
  - Malaise [Unknown]
  - Drug hypersensitivity [Unknown]
  - Intentional product misuse [Unknown]
  - Off label use [Unknown]
  - Off label use [Unknown]
